FAERS Safety Report 8584070-5 (Version None)
Quarter: 2012Q3

REPORT INFORMATION
  Report Type: 
  Country: None (occurrence: None)
  Receive Date: 20120810
  Receipt Date: 20120723
  Transmission Date: 20120928
  Serious: Yes (Other)
  Sender: FDA-Public Use
  Company Number: US-009507513-1207USA010461

PATIENT

DRUGS (2)
  1. ZOCOR [Suspect]
  2. ORENCIA [Suspect]
     Route: 042

REACTIONS (3)
  - MYOPATHY [None]
  - MALAISE [None]
  - LIVER FUNCTION TEST ABNORMAL [None]
